FAERS Safety Report 20440043 (Version 3)
Quarter: 2024Q4

REPORT INFORMATION
  Report Type: Spontaneous
  Country: CA (occurrence: CA)
  Receive Date: 20220207
  Receipt Date: 20241108
  Transmission Date: 20250115
  Serious: Yes (Other)
  Sender: B BRAUN
  Company Number: CA-B.Braun Medical Inc.-2124695

PATIENT
  Sex: Female

DRUGS (65)
  1. ACETAMINOPHEN [Suspect]
     Active Substance: ACETAMINOPHEN
  2. ADALIMUMAB [Suspect]
     Active Substance: ADALIMUMAB
  3. CALCIUM GLUCONATE [Suspect]
     Active Substance: CALCIUM GLUCONATE
  4. POTASSIUM CHLORIDE [Suspect]
     Active Substance: POTASSIUM CHLORIDE
  5. GRAMICIDIN\NEOMYCIN SULFATE\POLYMYXIN B SULFATE [Suspect]
     Active Substance: GRAMICIDIN\NEOMYCIN SULFATE\POLYMYXIN B SULFATE
  6. Biaxon XL [Concomitant]
  7. VITAMIN D NOS [Concomitant]
     Active Substance: CHOLECALCIFEROL\ERGOCALCIFEROL
  8. VALSARTAN [Concomitant]
     Active Substance: VALSARTAN
  9. ZINC OXIDE [Suspect]
     Active Substance: ZINC OXIDE
  10. ZEAXANTHIN [Suspect]
     Active Substance: ZEAXANTHIN
  11. XANTOFYL PALMITATE [Suspect]
     Active Substance: XANTOFYL PALMITATE
  12. .ALPHA.-TOCOPHEROL [Suspect]
     Active Substance: .ALPHA.-TOCOPHEROL
  13. VITAMIN D3 [Suspect]
     Active Substance: CHOLECALCIFEROL
  14. VALSARTAN [Suspect]
     Active Substance: VALSARTAN
  15. TRIAMCINOLONE ACETONIDE [Suspect]
     Active Substance: TRIAMCINOLONE ACETONIDE
  16. SULFAMETHOXAZOLE\TRIMETHOPRIM [Suspect]
     Active Substance: SULFAMETHOXAZOLE\TRIMETHOPRIM
  17. SODIUM CHLORIDE [Suspect]
     Active Substance: SODIUM CHLORIDE
  18. SODIUM BICARBONATE [Suspect]
     Active Substance: SODIUM BICARBONATE
  19. REFRESH TEARS [Suspect]
     Active Substance: CARBOXYMETHYLCELLULOSE SODIUM
  20. PREGABALIN [Suspect]
     Active Substance: PREGABALIN
  21. PREDNISONE [Suspect]
     Active Substance: PREDNISONE
  22. POLYMYXIN B SULFATE [Suspect]
     Active Substance: POLYMYXIN B SULFATE
  23. PANTOPRAZOLE SODIUM [Suspect]
     Active Substance: PANTOPRAZOLE SODIUM
  24. NICOTINE POLACRILEX [Suspect]
     Active Substance: NICOTINE
  25. NICOTINE [Suspect]
     Active Substance: NICOTINE
  26. NICODERM CQ [Suspect]
     Active Substance: NICOTINE
  27. NEOMYCIN SULFATE [Suspect]
     Active Substance: NEOMYCIN SULFATE
  28. NADOLOL [Suspect]
     Active Substance: NADOLOL
  29. MUPIROCIN CALCIUM [Suspect]
     Active Substance: MUPIROCIN CALCIUM
  30. MUPIROCIN [Suspect]
     Active Substance: MUPIROCIN
  31. MORPHINE SULFATE [Suspect]
     Active Substance: MORPHINE SULFATE
  32. METRONIDAZOLE [Suspect]
     Active Substance: METRONIDAZOLE
  33. MESALAMINE [Suspect]
     Active Substance: MESALAMINE
  34. MESALAMINE [Suspect]
     Active Substance: MESALAMINE
  35. MAGNESIUM SULFATE [Suspect]
     Active Substance: MAGNESIUM SULFATE
  36. POLYETHYLENE GLYCOL\POTASSIUM CHLORIDE\SODIUM BICARBONATE [Suspect]
     Active Substance: POLYETHYLENE GLYCOL\POTASSIUM CHLORIDE\SODIUM BICARBONATE
  37. POLYETHYLENE GLYCOLS [Suspect]
     Active Substance: POLYETHYLENE GLYCOLS
  38. LOPERAMIDE [Suspect]
     Active Substance: LOPERAMIDE
  39. HYDROMORPHONE HYDROCHLORIDE [Suspect]
     Active Substance: HYDROMORPHONE HYDROCHLORIDE
  40. HYDROCHLOROTHIAZIDE [Suspect]
     Active Substance: HYDROCHLOROTHIAZIDE
  41. HUMIRA [Suspect]
     Active Substance: ADALIMUMAB
  42. GRAMICIDIN [Suspect]
     Active Substance: GRAMICIDIN
  43. GLYCERIN [Suspect]
     Active Substance: GLYCERIN
  44. GLYCERIN [Suspect]
     Active Substance: GLYCERIN
  45. FLUTICASONE FUROATE [Suspect]
     Active Substance: FLUTICASONE FUROATE
  46. FLOVENT [Suspect]
     Active Substance: FLUTICASONE PROPIONATE
  47. ERTAPENEM SODIUM [Suspect]
     Active Substance: ERTAPENEM SODIUM
  48. DIPHENHYDRAMINE HYDROCHLORIDE [Suspect]
     Active Substance: DIPHENHYDRAMINE HYDROCHLORIDE
  49. DESONIDE [Suspect]
     Active Substance: DESONIDE
  50. .ALPHA.-TOCOPHEROL, D- [Suspect]
     Active Substance: .ALPHA.-TOCOPHEROL, D-
  51. CUPRIC OXIDE [Suspect]
     Active Substance: CUPRIC OXIDE
  52. CLOTRIMAZOLE [Suspect]
     Active Substance: CLOTRIMAZOLE
  53. CLARITHROMYCIN [Suspect]
     Active Substance: CLARITHROMYCIN
  54. CETIRIZINE HYDROCHLORIDE [Suspect]
     Active Substance: CETIRIZINE HYDROCHLORIDE
  55. CALCIUM CARBONATE [Suspect]
     Active Substance: CALCIUM CARBONATE
  56. BUDESONIDE [Suspect]
     Active Substance: BUDESONIDE
  57. BISACODYL [Suspect]
     Active Substance: BISACODYL
  58. BETAMETHASONE VALERATE [Suspect]
     Active Substance: BETAMETHASONE VALERATE
  59. BETAMETHASONE DIPROPIONATE [Suspect]
     Active Substance: BETAMETHASONE DIPROPIONATE
  60. AZITHROMYCIN [Suspect]
     Active Substance: AZITHROMYCIN
  61. ATROPINE SULFATE\DIPHENOXYLATE HYDROCHLORIDE [Suspect]
     Active Substance: ATROPINE SULFATE\DIPHENOXYLATE HYDROCHLORIDE
  62. ATORVASTATIN CALCIUM [Suspect]
     Active Substance: ATORVASTATIN CALCIUM
  63. AMOXICILLIN TRIHYDRATE [Suspect]
     Active Substance: AMOXICILLIN
  64. ALPRAZOLAM [Suspect]
     Active Substance: ALPRAZOLAM
  65. ASPIRIN\CITRIC ACID\SODIUM BICARBONATE [Suspect]
     Active Substance: ASPIRIN\CITRIC ACID MONOHYDRATE\SODIUM BICARBONATE

REACTIONS (2)
  - Drug ineffective [Unknown]
  - Macular degeneration [Unknown]
